FAERS Safety Report 4736522-3 (Version None)
Quarter: 2005Q3

REPORT INFORMATION
  Report Type: 
  Country: None (occurrence: None)
  Receive Date: 20050808
  Receipt Date: 20050407
  Transmission Date: 20060218
  Serious: Yes (Hospitalization, Other)
  Sender: FDA-Public Use
  Company Number: US-AMGEN-US126091

PATIENT
  Sex: Male
  Weight: 59.9 kg

DRUGS (5)
  1. PROCRIT [Suspect]
     Indication: RENAL FAILURE CHRONIC
     Route: 058
  2. ALLOPURINOL [Concomitant]
  3. ISORBID [Concomitant]
  4. HYDRALAZINE HCL [Concomitant]
  5. LASIX [Concomitant]

REACTIONS (3)
  - PACEMAKER COMPLICATION [None]
  - SYNCOPE [None]
  - TACHYCARDIA [None]
